FAERS Safety Report 4613883-7 (Version None)
Quarter: 2005Q1

REPORT INFORMATION
  Report Type: 
  Country: None (occurrence: None)
  Receive Date: 20050316
  Receipt Date: 20050309
  Transmission Date: 20050727
  Serious: Yes (Hospitalization)
  Sender: FDA-Public Use
  Company Number: 141570USA

PATIENT
  Age: 54 Year
  Sex: Female

DRUGS (1)
  1. PIMOZIDE [Suspect]
     Indication: SCHIZOPHRENIA
     Dosage: 4 MILLIGRAM
     Route: 048

REACTIONS (1)
  - DIABETES MELLITUS [None]
